FAERS Safety Report 7749031-4 (Version None)
Quarter: 2011Q3

REPORT INFORMATION
  Report Type: 
  Country: None (occurrence: None)
  Receive Date: 20110909
  Receipt Date: 20110830
  Transmission Date: 20111222
  Serious: Yes (Other)
  Sender: FDA-Public Use
  Company Number: 2011SP000506

PATIENT
  Sex: Female
  Weight: 86.1834 kg

DRUGS (15)
  1. PRISTIQ [Concomitant]
  2. HYDROXYZINE HCL [Concomitant]
  3. PEG-INTRON [Suspect]
     Indication: HEPATITIS C
     Dosage: UNK;UNK, 120 MG;UNK
     Dates: start: 20100107, end: 20100128
  4. PEG-INTRON [Suspect]
     Indication: HEPATITIS C
     Dosage: UNK;UNK, 120 MG;UNK
     Dates: start: 20091105, end: 20091119
  5. PEG-INTRON [Suspect]
     Indication: HEPATITIS C
     Dosage: UNK;UNK, 120 MG;UNK
     Dates: start: 20110102
  6. PEG-INTRON [Suspect]
     Indication: HEPATITIS C
     Dosage: UNK;UNK, 120 MG;UNK
     Dates: start: 20110405, end: 20110501
  7. PEG-INTRON [Suspect]
     Indication: HEPATITIS C
     Dosage: UNK;UNK, 120 MG;UNK
     Dates: start: 20081029, end: 20090529
  8. PEG-INTRON [Suspect]
     Indication: HEPATITIS C
     Dosage: UNK;UNK, 120 MG;UNK
     Dates: start: 20110222
  9. RIBAVIRIN [Suspect]
     Indication: HEPATITIS C
     Dosage: UNK;UNK
     Dates: start: 20100107, end: 20100128
  10. RIBAVIRIN [Suspect]
     Indication: HEPATITIS C
     Dosage: UNK;UNK
     Dates: start: 20110405, end: 20110501
  11. RIBAVIRIN [Suspect]
     Indication: HEPATITIS C
     Dosage: UNK;UNK
     Dates: start: 20110222
  12. RIBAVIRIN [Suspect]
     Indication: HEPATITIS C
     Dosage: UNK;UNK
     Dates: start: 20091105, end: 20091119
  13. PHENERGAN HCL [Concomitant]
  14. RIBAVIRIN [Suspect]
     Indication: HEPATITIS C
     Dosage: UNK;PO
     Route: 048
     Dates: start: 20081029, end: 20090529
  15. ZOFRAN [Concomitant]

REACTIONS (25)
  - INSOMNIA [None]
  - CONTUSION [None]
  - DEPRESSION [None]
  - GRIEF REACTION [None]
  - PNEUMONIA [None]
  - DEHYDRATION [None]
  - RHINITIS [None]
  - VOMITING [None]
  - SUICIDAL IDEATION [None]
  - INJECTION SITE ERYTHEMA [None]
  - ALCOHOL USE [None]
  - BLOOD POTASSIUM DECREASED [None]
  - UNEVALUABLE EVENT [None]
  - INJECTION SITE HAEMORRHAGE [None]
  - HYPOPHAGIA [None]
  - TREATMENT NONCOMPLIANCE [None]
  - WEIGHT DECREASED [None]
  - PANIC ATTACK [None]
  - FLUID INTAKE REDUCED [None]
  - ANXIETY [None]
  - DEATH OF RELATIVE [None]
  - MENTAL DISORDER [None]
  - NAUSEA [None]
  - PAIN [None]
  - EAR INFECTION [None]
